FAERS Safety Report 7249679-X (Version None)
Quarter: 2011Q1

REPORT INFORMATION
  Report Type: 
  Country: None (occurrence: None)
  Receive Date: 20110128
  Receipt Date: 20110120
  Transmission Date: 20110831
  Serious: Yes (Other)
  Sender: FDA-Public Use
  Company Number: US-RB-018580-11

PATIENT
  Age: 68 Year
  Sex: Male

DRUGS (2)
  1. MUCINEX [Suspect]
     Dosage: PATIENT TOOK A TOTAL OF 3 TABLETS STARTING ON 03-JAN-2011
     Route: 048
  2. LISINOPRIL [Concomitant]

REACTIONS (1)
  - BLOOD PRESSURE INCREASED [None]
